FAERS Safety Report 9704927 (Version 1)
Quarter: 2013Q4

REPORT INFORMATION
  Report Type: Report from Study
  Country: US (occurrence: US)
  Receive Date: 20131122
  Receipt Date: 20131122
  Transmission Date: 20140711
  Serious: Yes (Other)
  Sender: FDA-Public Use
  Company Number: US-ABBVIE-13P-163-1169475-00

PATIENT
  Sex: Female

DRUGS (4)
  1. HUMIRA [Suspect]
     Indication: CROHN^S DISEASE
     Dates: start: 20130813, end: 20131022
  2. LIALDA [Concomitant]
     Indication: CROHN^S DISEASE
     Dosage: 1.2GM, 4 TABLETS DAILY
  3. UCERIS [Concomitant]
     Indication: CROHN^S DISEASE
     Route: 048
  4. THYROID MEDICATION [Concomitant]
     Indication: PRODUCT USED FOR UNKNOWN INDICATION

REACTIONS (1)
  - Scar [Not Recovered/Not Resolved]
